FAERS Safety Report 7361208-9 (Version None)
Quarter: 2011Q1

REPORT INFORMATION
  Report Type: 
  Country: None (occurrence: None)
  Receive Date: 20110318
  Receipt Date: 20110304
  Transmission Date: 20110831
  Serious: Yes (Other)
  Sender: FDA-Public Use
  Company Number: PHHY2011US18937

PATIENT
  Sex: Female

DRUGS (7)
  1. MULTI-VITAMIN [Concomitant]
  2. AUGMENTIN '125' [Concomitant]
  3. DIOVAN [Suspect]
     Dosage: 320 MG, QD
  4. KLONOPIN [Concomitant]
  5. JANUMET [Concomitant]
     Dosage: 50/1000 MG, UNK
  6. NORVASC [Suspect]
  7. LISINOPRIL [Suspect]

REACTIONS (1)
  - HYPERTENSION [None]
